FAERS Safety Report 7743122-X (Version None)
Quarter: 2011Q3

REPORT INFORMATION
  Report Type: 
  Country: None (occurrence: None)
  Receive Date: 20110912
  Receipt Date: 20110901
  Transmission Date: 20111222
  Serious: Yes (Death)
  Sender: FDA-Public Use
  Company Number: DZ-ROCHE-800847

PATIENT
  Age: 39 Year
  Sex: Female

DRUGS (2)
  1. AVASTIN [Suspect]
     Dosage: FREQUENCY: PER CURE
     Route: 065
     Dates: start: 20101108, end: 20110524
  2. PACLITAXEL [Suspect]
     Dosage: FREQUENCY: PER CURE
     Route: 065

REACTIONS (2)
  - APLASIA [None]
  - BONE PAIN [None]
